FAERS Safety Report 18659758 (Version 1)
Quarter: 2020Q4

REPORT INFORMATION
  Report Type: Report from Study
  Country: None (occurrence: US)
  Receive Date: 20201224
  Receipt Date: 20201224
  Transmission Date: 20210114
  Serious: Yes (Life-Threatening)
  Sender: FDA-Public Use
  Company Number: US-ABBVIE-20K-163-3640096-00

PATIENT
  Sex: Female

DRUGS (1)
  1. SYNTHROID [Suspect]
     Active Substance: LEVOTHYROXINE SODIUM
     Indication: HYPOTHYROIDISM
     Route: 048
     Dates: start: 2003

REACTIONS (13)
  - Inflammation [Unknown]
  - Illness [Recovered/Resolved]
  - Abdominal pain [Unknown]
  - Product taste abnormal [Unknown]
  - Abdominal distension [Unknown]
  - Product counterfeit [Recovered/Resolved]
  - Near death experience [Unknown]
  - General physical health deterioration [Unknown]
  - Product packaging quantity issue [Recovered/Resolved]
  - Dyspepsia [Unknown]
  - Product coating issue [Unknown]
  - Illness [Unknown]
  - Nausea [Unknown]

NARRATIVE: CASE EVENT DATE: 2017
